FAERS Safety Report 9361048 (Version 1)
Quarter: 2013Q2

REPORT INFORMATION
  Report Type: Spontaneous
  Country: CA (occurrence: CA)
  Receive Date: 20130621
  Receipt Date: 20130621
  Transmission Date: 20140414
  Serious: Yes (Other)
  Sender: FDA-Public Use
  Company Number: CA-TEVA-414178USA

PATIENT
  Age: 48 Year
  Sex: Male
  Weight: 118.04 kg

DRUGS (2)
  1. DIVALPROEX SODIUM [Suspect]
     Dosage: 500 MILLIGRAM DAILY;
     Route: 048
  2. TRILEPTAL [Concomitant]

REACTIONS (4)
  - Dizziness [Unknown]
  - Heat stroke [Unknown]
  - Hot flush [Unknown]
  - Product substitution issue [Unknown]
